FAERS Safety Report 8131297-2 (Version None)
Quarter: 2012Q1

REPORT INFORMATION
  Report Type: 
  Country: None (occurrence: None)
  Receive Date: 20120213
  Receipt Date: 20120131
  Transmission Date: 20120608
  Serious: No
  Sender: FDA-Public Use
  Company Number: US-B.I. PHARMACEUTICALS,INC./RIDGEFIELD-2012-BP-00489BP

PATIENT
  Sex: Male

DRUGS (6)
  1. NEXIUM [Concomitant]
  2. HYDROCHLOROTHIAZIDE [Concomitant]
     Dosage: 25 MG
  3. METOCLOPRAMIDE [Concomitant]
     Dosage: 100 MG
  4. PRADAXA [Suspect]
     Indication: ATRIAL FLUTTER
     Dosage: 150 MG
  5. SPIRONOLACTONE [Concomitant]
     Dosage: 25 MG
  6. ALFAZOSIN [Concomitant]

REACTIONS (1)
  - PROCTALGIA [None]
